FAERS Safety Report 6390192-X (Version None)
Quarter: 2009Q4

REPORT INFORMATION
  Report Type: 
  Country: None (occurrence: None)
  Receive Date: 20091006
  Receipt Date: 20090929
  Transmission Date: 20100525
  Serious: Yes (Death, Life-Threatening, Hospitalization, Disabling, Other)
  Sender: FDA-Public Use
  Company Number: A0713546A

PATIENT
  Age: 35 Year
  Sex: Female

DRUGS (4)
  1. LAMICTAL [Suspect]
     Dosage: 200MG PER DAY
     Route: 048
     Dates: start: 20080104, end: 20080201
  2. LEXAPRO [Concomitant]
  3. KLONOPIN [Concomitant]
  4. LUNESTA [Concomitant]

REACTIONS (6)
  - BRAIN DEATH [None]
  - BRAIN HERNIATION [None]
  - BRAIN OEDEMA [None]
  - COMA [None]
  - HAEMORRHAGE [None]
  - STEVENS-JOHNSON SYNDROME [None]
